FAERS Safety Report 25483199 (Version 1)
Quarter: 2025Q2

REPORT INFORMATION
  Report Type: Spontaneous
  Country: US (occurrence: US)
  Receive Date: 20250626
  Receipt Date: 20250626
  Transmission Date: 20250716
  Serious: Yes (Life-Threatening, Hospitalization, Other)
  Sender: AUROBINDO
  Company Number: US-MLMSERVICE-20250602-PI531571-00232-1

PATIENT
  Age: 77 Year
  Sex: Male

DRUGS (9)
  1. MYCOPHENOLIC ACID [Suspect]
     Active Substance: MYCOPHENOLIC ACID
     Indication: Immunosuppressant drug therapy
     Route: 065
  2. PREDNISONE [Suspect]
     Active Substance: PREDNISONE
     Indication: Product used for unknown indication
     Route: 065
  3. TACROLIMUS [Suspect]
     Active Substance: TACROLIMUS
     Indication: Immunosuppressant drug therapy
     Route: 065
  4. AMPHOTERICIN B [Concomitant]
     Active Substance: AMPHOTERICIN B
     Indication: Sinusitis
     Route: 065
  5. AMPHOTERICIN B [Concomitant]
     Active Substance: AMPHOTERICIN B
     Indication: Meningitis
  6. Broad spectrum antifungal [Concomitant]
     Indication: Sinusitis
     Route: 065
  7. Broad spectrum antifungal [Concomitant]
     Indication: Meningitis
  8. FLUCYTOSINE [Concomitant]
     Active Substance: FLUCYTOSINE
     Indication: Sinusitis
     Route: 065
  9. FLUCYTOSINE [Concomitant]
     Active Substance: FLUCYTOSINE
     Indication: Meningitis

REACTIONS (4)
  - Cerebral fungal infection [Recovering/Resolving]
  - Cryptococcosis [Recovering/Resolving]
  - Meningitis cryptococcal [Recovering/Resolving]
  - Cerebral ventricle dilatation [Recovering/Resolving]
